FAERS Safety Report 4607942-2 (Version None)
Quarter: 2005Q2

REPORT INFORMATION
  Report Type: 
  Country: None (occurrence: None)
  Receive Date: 20050303
  Receipt Date: 20041004
  Transmission Date: 20051028
  Serious: No
  Sender: FDA-Public Use
  Company Number: 206321

PATIENT
  Age: 29 Year
  Sex: Female
  Weight: 79.5 kg

DRUGS (4)
  1. XOLAIR [Suspect]
     Indication: ASTHMA
     Dosage: 300 MG, Q2W, SUBCUTANEOUS
     Route: 058
     Dates: start: 20040504, end: 20040622
  2. SINGULAIR [Concomitant]
  3. ADVAIR (SALMETEROL XINAFOATE, FLUTICASONE PROPIONATE) [Concomitant]
  4. ALBUTEROL (ALBUTEROL, ALBUTEROL SULFATE) [Concomitant]

REACTIONS (1)
  - ERYTHEMA [None]
